FAERS Safety Report 20044129 (Version 3)
Quarter: 2022Q1

REPORT INFORMATION
  Report Type: Report from Study
  Country: FR (occurrence: FR)
  Receive Date: 20211108
  Receipt Date: 20220302
  Transmission Date: 20220423
  Serious: Yes (Other)
  Sender: FDA-Public Use
  Company Number: FR-ORPHANEU-2021003570

PATIENT
  Age: 73 Year
  Sex: Male

DRUGS (3)
  1. MECHLORETHAMINE HYDROCHLORIDE [Suspect]
     Active Substance: MECHLORETHAMINE HYDROCHLORIDE
     Indication: Cutaneous T-cell lymphoma
     Dosage: UNK, QOD
     Route: 003
     Dates: start: 20210823, end: 20211019
  2. MECHLORETHAMINE HYDROCHLORIDE [Suspect]
     Active Substance: MECHLORETHAMINE HYDROCHLORIDE
     Dosage: UNK, QOD
     Route: 003
     Dates: start: 20211025, end: 20211214
  3. DERMOVAL                           /00008501/ [Concomitant]
     Dosage: UNK, QOD
     Route: 061

REACTIONS (13)
  - Wound infection [Recovering/Resolving]
  - Application site wound [Recovering/Resolving]
  - Skin abrasion [Recovering/Resolving]
  - Application site pain [Not Recovered/Not Resolved]
  - Therapy interrupted [Recovered/Resolved]
  - Condition aggravated [Recovered/Resolved]
  - Off label use [Not Recovered/Not Resolved]
  - Acne [Not Recovered/Not Resolved]
  - Application site irritation [Not Recovered/Not Resolved]
  - Application site pruritus [Recovering/Resolving]
  - Blister [Not Recovered/Not Resolved]
  - Pruritus [Unknown]
  - Application site erythema [Not Recovered/Not Resolved]

NARRATIVE: CASE EVENT DATE: 20210823
